FAERS Safety Report 8062838-1 (Version None)
Quarter: 2012Q1

REPORT INFORMATION
  Report Type: 
  Country: None (occurrence: None)
  Receive Date: 20120123
  Receipt Date: 20120120
  Transmission Date: 20120608
  Serious: Yes (Death)
  Sender: FDA-Public Use
  Company Number: AU-B.I. PHARMACEUTICALS,INC./RIDGEFIELD-2012-AU-00101AU

PATIENT
  Sex: Male

DRUGS (8)
  1. ENALAPRIL MALEATE [Concomitant]
  2. OSMOLAX [Concomitant]
  3. LANOXIN [Concomitant]
  4. PRADAXA [Suspect]
     Indication: CEREBROVASCULAR ACCIDENT PROPHYLAXIS
     Dosage: 220 MG
     Dates: start: 20110711
  5. PRADAXA [Suspect]
     Indication: ATRIAL FIBRILLATION
  6. SLOW-K [Concomitant]
  7. MINIPRESS [Concomitant]
  8. LASIX [Concomitant]

REACTIONS (1)
  - PROGRESSIVE SUPRANUCLEAR PALSY [None]
